FAERS Safety Report 14837714 (Version 1)
Quarter: 2018Q2

REPORT INFORMATION
  Report Type: Spontaneous
  Country: US (occurrence: US)
  Receive Date: 20180502
  Receipt Date: 20180502
  Transmission Date: 20180711
  Serious: Yes (Hospitalization)
  Sender: FDA-Public Use
  Company Number: US-ASTRAZENECA-2018SE55744

PATIENT
  Age: 79 Year
  Sex: Male

DRUGS (2)
  1. SEROQUEL [Suspect]
     Active Substance: QUETIAPINE FUMARATE
     Route: 048
  2. ATIVAN [Concomitant]
     Active Substance: LORAZEPAM

REACTIONS (5)
  - Hallucination [Unknown]
  - Urinary tract infection [Unknown]
  - Drug intolerance [Unknown]
  - Staring [Recovered/Resolved]
  - Confusional state [Recovering/Resolving]
